FAERS Safety Report 4661579-8 (Version None)
Quarter: 2005Q2

REPORT INFORMATION
  Report Type: 
  Country: None (occurrence: None)
  Receive Date: 20050512
  Receipt Date: 20050512
  Transmission Date: 20051028
  Serious: Yes (Life-Threatening, Hospitalization)
  Sender: FDA-Public Use
  Company Number: None

PATIENT
  Age: 66 Year
  Sex: Male

DRUGS (10)
  1. ETODOLAC [Suspect]
     Indication: OSTEOARTHRITIS
     Dosage: 400MG PO  QD
     Route: 048
     Dates: start: 20040802, end: 20050322
  2. ASPIRIN [Suspect]
     Indication: CORONARY ARTERY DISEASE
     Dosage: DOSE PO
     Route: 048
     Dates: start: 20050101
  3. METFORMIN [Concomitant]
  4. ETODOLAC [Concomitant]
  5. PERCOCET [Concomitant]
  6. ATENOLOL [Concomitant]
  7. SIMVASTATIN [Concomitant]
  8. GLYBURIDE [Concomitant]
  9. ENALAPRIL MALEATE [Concomitant]
  10. QUININE SULFATE [Concomitant]

REACTIONS (4)
  - ASTHENIA [None]
  - DUODENAL ULCER [None]
  - GASTRIC ULCER [None]
  - HAEMATOCRIT DECREASED [None]
